FAERS Safety Report 15980335 (Version 1)
Quarter: 2019Q1

REPORT INFORMATION
  Report Type: Spontaneous
  Country: US (occurrence: US)
  Receive Date: 20190124
  Receipt Date: 20190124
  Transmission Date: 20190418
  Serious: No
  Sender: FDA-Public Use
  Company Number: None

PATIENT
  Age: 60 Year
  Sex: Female

DRUGS (1)
  1. ENVARSUS XR [Suspect]
     Active Substance: TACROLIMUS
     Route: 048
     Dates: start: 20181227

REACTIONS (3)
  - Physical product label issue [None]
  - Product dispensing error [None]
  - Laboratory test abnormal [None]

NARRATIVE: CASE EVENT DATE: 20181227
